FAERS Safety Report 8460696 (Version 3)
Quarter: 2013Q1

REPORT INFORMATION
  Report Type: Spontaneous
  Country: BE (occurrence: None)
  Receive Date: 20120307
  Receipt Date: 20121231
  Transmission Date: 20140127
  Serious: Yes (Hospitalization)
  Sender: FDA-Public Use
  Company Number: 0226034

PATIENT
  Age: 61 Year
  Sex: Female

DRUGS (6)
  1. TACHOSIL [Suspect]
     Indication: HAEMOSTASIS
     Dosage: APPLICATION ON CUT EDGES OF STERNUM
     Dates: start: 20110607
  2. ASPIRIN [Concomitant]
  3. EMCONCOR (BISOPROLOL FUMARATE) [Concomitant]
  4. ZESTRIL [Concomitant]
  5. ZOCOR [Concomitant]
  6. OMEPRAZOLE [Concomitant]

REACTIONS (6)
  - Bone abscess [None]
  - Granuloma [None]
  - Off label use [None]
  - Impaired healing [None]
  - Staphylococcus test positive [None]
  - Postoperative thoracic procedure complication [None]
